FAERS Safety Report 23021560 (Version 1)
Quarter: 2023Q4

REPORT INFORMATION
  Report Type: Spontaneous
  Country: US (occurrence: None)
  Receive Date: 20231003
  Receipt Date: 20231003
  Transmission Date: 20240110
  Serious: Yes (Death)
  Sender: FDA-Public Use
  Company Number: None

PATIENT
  Sex: Female
  Weight: 53.98 kg

DRUGS (3)
  1. FLUOROURACIL [Suspect]
     Active Substance: FLUOROURACIL
     Dates: start: 20230912, end: 20230914
  2. IRINOTECAN [Suspect]
     Active Substance: IRINOTECAN
     Dates: start: 20230912, end: 20230912
  3. LEUCOVORIN CALCIUM [Suspect]
     Active Substance: LEUCOVORIN CALCIUM
     Dates: start: 20230912, end: 20230912

REACTIONS (3)
  - Asthenia [None]
  - Hypotension [None]
  - Confusional state [None]
